FAERS Safety Report 16455573 (Version 1)
Quarter: 2019Q2

REPORT INFORMATION
  Report Type: Spontaneous
  Country: US (occurrence: US)
  Receive Date: 20190619
  Receipt Date: 20190619
  Transmission Date: 20190711
  Serious: No
  Sender: FDA-Public Use
  Company Number: US-ROCHE-2172674

PATIENT
  Sex: Female
  Weight: 61.74 kg

DRUGS (2)
  1. FLUZONE [INFLUENZA VACCINE] [Concomitant]
     Route: 023
     Dates: start: 20170523
  2. ACTEMRA [Suspect]
     Active Substance: TOCILIZUMAB
     Indication: PRODUCT USED FOR UNKNOWN INDICATION
     Route: 058
     Dates: start: 20170503

REACTIONS (1)
  - Weight increased [Unknown]
